FAERS Safety Report 22313145 (Version 1)
Quarter: 2023Q2

REPORT INFORMATION
  Report Type: Spontaneous
  Country: JP (occurrence: JP)
  Receive Date: 20230512
  Receipt Date: 20230512
  Transmission Date: 20230721
  Serious: Yes (Life-Threatening, Other)
  Sender: FDA-Public Use
  Company Number: JP-NBI-BJ202308185

PATIENT
  Age: 78 Year
  Sex: Male

DRUGS (1)
  1. DABIGATRAN ETEXILATE MESYLATE [Suspect]
     Active Substance: DABIGATRAN ETEXILATE MESYLATE
     Indication: Atrial fibrillation
     Route: 048
     Dates: start: 20230425, end: 20230425

REACTIONS (1)
  - Cardiac tamponade [Recovered/Resolved]

NARRATIVE: CASE EVENT DATE: 20230425
